FAERS Safety Report 5346760-7 (Version None)
Quarter: 2007Q2

REPORT INFORMATION
  Report Type: 
  Country: None (occurrence: None)
  Receive Date: 20070604
  Receipt Date: 20070529
  Transmission Date: 20071010
  Serious: Yes (Death, Hospitalization)
  Sender: FDA-Public Use
  Company Number: 2007SP005592

PATIENT
  Age: 42 Year
  Sex: Male

DRUGS (2)
  1. PEG-INTRON [Suspect]
     Indication: HEPATITIS C VIRUS
     Dosage: 100 MCG
     Dates: start: 20060609, end: 20061027
  2. RIBAVIRIN [Suspect]
     Indication: HEPATITIS C VIRUS
     Dosage: 1000 PO
     Route: 048
     Dates: start: 20060609, end: 20061027

REACTIONS (2)
  - CEREBRAL THROMBOSIS [None]
  - THROMBOTIC THROMBOCYTOPENIC PURPURA [None]
